FAERS Safety Report 6721844-7 (Version None)
Quarter: 2010Q2

REPORT INFORMATION
  Report Type: 
  Country: None (occurrence: None)
  Receive Date: 20100512
  Receipt Date: 20100415
  Transmission Date: 20101027
  Serious: Yes (Other)
  Sender: FDA-Public Use
  Company Number: PHHY2010GB27248

PATIENT
  Sex: Female

DRUGS (17)
  1. GLEEVEC [Suspect]
     Indication: CHRONIC MYELOID LEUKAEMIA
     Dosage: 400 MG DAILY
  2. OMEPRAZOLE [Concomitant]
     Indication: DYSPEPSIA
  3. LOPERAMIDE [Concomitant]
     Indication: DIARRHOEA
  4. BRUFEN ^ABBOTT^ [Concomitant]
     Indication: ARTHRALGIA
  5. PARACETAMOL [Concomitant]
     Indication: ANALGESIC THERAPY
  6. ACETAMINOPHEN AND CODEINE PHOSPHATE [Concomitant]
     Indication: ANALGESIC THERAPY
  7. DICLOFENAC [Concomitant]
     Indication: ANALGESIC THERAPY
  8. LORATADINE [Concomitant]
     Indication: PRURITUS
  9. GERMOLOIDS HC [Concomitant]
     Indication: GENITAL PAIN
  10. BEPANTHEN                               /AUT/ [Concomitant]
     Indication: PAIN OF SKIN
  11. CHLORAMPHENICOL [Concomitant]
     Indication: EYE PAIN
  12. TRI-ADCORTYL [Concomitant]
     Indication: VULVAL DISORDER
     Dosage: UNK
     Dates: start: 20100408
  13. DIAZEPAM [Concomitant]
     Indication: INSOMNIA
     Dosage: UNK
     Dates: start: 20100408
  14. DIAZEPAM [Concomitant]
     Indication: FEELING OF RELAXATION
  15. LOCAL ANAESTHETICS [Concomitant]
  16. VASELINE [Concomitant]
  17. FLUOXETINE [Concomitant]

REACTIONS (32)
  - ABDOMINAL PAIN [None]
  - ALOPECIA [None]
  - ARTHRALGIA [None]
  - CONFUSIONAL STATE [None]
  - DECREASED APPETITE [None]
  - DEPRESSION [None]
  - DIARRHOEA [None]
  - DRUG EFFECT DECREASED [None]
  - DYSKINESIA [None]
  - DYSPEPSIA [None]
  - DYSURIA [None]
  - EYE INFECTION [None]
  - EYE SWELLING [None]
  - FATIGUE [None]
  - FEELING ABNORMAL [None]
  - FEELING COLD [None]
  - FLUID RETENTION [None]
  - FRUSTRATION [None]
  - HEARING IMPAIRED [None]
  - HYPOAESTHESIA [None]
  - INSOMNIA [None]
  - JOINT STIFFNESS [None]
  - LIVEDO RETICULARIS [None]
  - LOSS OF LIBIDO [None]
  - MYALGIA [None]
  - NAUSEA [None]
  - PERIPHERAL CIRCULATORY FAILURE [None]
  - PRURITUS [None]
  - SCRATCH [None]
  - SPEECH DISORDER [None]
  - STRESS [None]
  - TREATMENT NONCOMPLIANCE [None]
